FAERS Safety Report 24386944 (Version 2)
Quarter: 2024Q4

REPORT INFORMATION
  Report Type: Spontaneous
  Country: AR (occurrence: AR)
  Receive Date: 20241002
  Receipt Date: 20241113
  Transmission Date: 20250114
  Serious: Yes (Other)
  Sender: TAKEDA
  Company Number: AR-TAKEDA-2024TUS091720

PATIENT
  Age: 42 Year
  Sex: Male
  Weight: 80 kg

DRUGS (1)
  1. VPRIV [Suspect]
     Active Substance: VELAGLUCERASE ALFA
     Indication: Product used for unknown indication
     Dosage: UNK

REACTIONS (14)
  - General physical condition abnormal [Unknown]
  - Paralysis [Unknown]
  - Chitotriosidase increased [Unknown]
  - Muscle spasms [Unknown]
  - Enzyme level decreased [Unknown]
  - Pain [Unknown]
  - Product availability issue [Unknown]
  - Product distribution issue [Unknown]
  - Product use issue [Unknown]
  - Inappropriate schedule of product administration [Unknown]
  - Muscle injury [Unknown]
  - Contusion [Unknown]
  - Arthralgia [Unknown]
  - Bone pain [Unknown]

NARRATIVE: CASE EVENT DATE: 20141001
